FAERS Safety Report 11689336 (Version 2)
Quarter: 2015Q4

REPORT INFORMATION
  Report Type: Spontaneous
  Country: JP (occurrence: JP)
  Receive Date: 20151102
  Receipt Date: 20151217
  Transmission Date: 20160304
  Serious: Yes (Death, Other)
  Sender: FDA-Public Use
  Company Number: JP-009507513-1511JPN000212

PATIENT
  Age: 14 Year
  Sex: Male

DRUGS (1)
  1. TEMODAL [Suspect]
     Active Substance: TEMOZOLOMIDE
     Indication: GLIOMA
     Dosage: DAILY DOSE UNKNOWN
     Route: 065

REACTIONS (3)
  - Blood pressure decreased [Unknown]
  - Respiratory arrest [Unknown]
  - Death [Fatal]
